FAERS Safety Report 6051379-9 (Version None)
Quarter: 2009Q1

REPORT INFORMATION
  Report Type: 
  Country: None (occurrence: None)
  Receive Date: 20090121
  Receipt Date: 20090105
  Transmission Date: 20090719
  Serious: No
  Sender: FDA-Public Use
  Company Number: 133537

PATIENT
  Age: 55 Year
  Sex: Male

DRUGS (3)
  1. CALCIUM FOLINATE 10 MG/ML           (CALCIUM FOLINATE) [Suspect]
     Dosage: INTRAVENOUS
     Route: 042
     Dates: start: 20090102
  2. IRINOTECAN HYDROCHLORIDE TRIHYDRATE FOR INJECTION [Suspect]
     Indication: NEOPLASM MALIGNANT
     Dosage: 337 MG, INTRAVENOUS
     Route: 042
     Dates: start: 20081017, end: 20090102
  3. IRINOTECAN HYDROCHLORIDE TRIHYDRATE FOR INJECTION [Suspect]
     Indication: PERITONEAL DISORDER
     Dosage: 337 MG, INTRAVENOUS
     Route: 042
     Dates: start: 20081017, end: 20090102

REACTIONS (4)
  - CHEST DISCOMFORT [None]
  - DRUG HYPERSENSITIVITY [None]
  - PHARYNGEAL OEDEMA [None]
  - SPEECH DISORDER [None]
